FAERS Safety Report 7278082-1 (Version None)
Quarter: 2011Q1

REPORT INFORMATION
  Report Type: 
  Country: None (occurrence: None)
  Receive Date: 20110207
  Receipt Date: 20110131
  Transmission Date: 20110831
  Serious: Yes (Life-Threatening, Hospitalization, Other)
  Sender: FDA-Public Use
  Company Number: FR-BRISTOL-MYERS SQUIBB COMPANY-15522287

PATIENT
  Age: 44 Year
  Sex: Female

DRUGS (10)
  1. COUMADIN [Suspect]
     Indication: ATRIAL FIBRILLATION
     Route: 048
  2. ATHYMIL [Concomitant]
  3. XANAX [Concomitant]
  4. BISOPROLOL FUMARATE [Concomitant]
  5. CAPTOPRIL [Concomitant]
  6. CALCIPARINE [Suspect]
     Indication: INTERNATIONAL NORMALISED RATIO
     Route: 058
     Dates: start: 20101123
  7. LYRICA [Concomitant]
  8. CORTANCYL [Concomitant]
  9. LASIX [Concomitant]
  10. LANTUS [Concomitant]

REACTIONS (5)
  - PELVIC HAEMATOMA [None]
  - GENERAL PHYSICAL HEALTH DETERIORATION [None]
  - SEPSIS [None]
  - VASCULAR OCCLUSION [None]
  - OEDEMA PERIPHERAL [None]
